FAERS Safety Report 5933210-2 (Version None)
Quarter: 2008Q4

REPORT INFORMATION
  Report Type: 
  Country: None (occurrence: None)
  Receive Date: 20081028
  Receipt Date: 20081013
  Transmission Date: 20090506
  Serious: Yes (Hospitalization)
  Sender: FDA-Public Use
  Company Number: US-BAYER-200814059BCC

PATIENT
  Age: 91 Year
  Sex: Female
  Weight: 68 kg

DRUGS (2)
  1. ALKA-SELTZER PLUS SPARKING ORIGINAL EFFERVESCENT TABLETS [Suspect]
     Indication: SLEEP DISORDER
     Dates: start: 20030101, end: 20080129
  2. ASPIRIN [Concomitant]
     Dosage: UNIT DOSE: 325 MG

REACTIONS (3)
  - CEREBROVASCULAR ACCIDENT [None]
  - DIARRHOEA [None]
  - MALAISE [None]
